FAERS Safety Report 7713892-5 (Version None)
Quarter: 2011Q3

REPORT INFORMATION
  Report Type: 
  Country: None (occurrence: None)
  Receive Date: 20110826
  Receipt Date: 20110822
  Transmission Date: 20111222
  Serious: Yes (Hospitalization)
  Sender: FDA-Public Use
  Company Number: IT-GENENTECH-323088

PATIENT
  Age: 29 Year
  Sex: Female

DRUGS (7)
  1. ARAVA [Suspect]
     Indication: RHEUMATOID ARTHRITIS
     Dosage: 20 MG, QD
     Route: 048
     Dates: start: 20101129, end: 20110606
  2. ENBREL [Suspect]
     Indication: RHEUMATOID ARTHRITIS
     Dosage: 50 MG, 1/WEEK
     Route: 058
     Dates: start: 20101129, end: 20110606
  3. PLAQUENIL [Concomitant]
     Indication: PRODUCT USED FOR UNKNOWN INDICATION
  4. PREDNISONE [Concomitant]
     Indication: PRODUCT USED FOR UNKNOWN INDICATION
  5. ANALGESICS NOS [Concomitant]
     Indication: PRODUCT USED FOR UNKNOWN INDICATION
  6. MABTHERA [Suspect]
     Indication: RHEUMATOID ARTHRITIS
     Dosage: 2 G, UNK
     Route: 042
     Dates: start: 20090204, end: 20100825
  7. NSAIDS NOS [Concomitant]
     Indication: PRODUCT USED FOR UNKNOWN INDICATION

REACTIONS (3)
  - VAGINAL HAEMORRHAGE [None]
  - SQUAMOUS CELL CARCINOMA OF THE CERVIX [None]
  - PELVIC PAIN [None]
